FAERS Safety Report 6204166-2 (Version None)
Quarter: 2009Q2

REPORT INFORMATION
  Report Type: 
  Country: None (occurrence: None)
  Receive Date: 20090527
  Receipt Date: 20090520
  Transmission Date: 20091009
  Serious: Yes (Death)
  Sender: FDA-Public Use
  Company Number: GB-MERCK-0905GBR00069

PATIENT
  Age: 76 Year
  Sex: Male
  Weight: 68 kg

DRUGS (5)
  1. JANUVIA [Suspect]
     Route: 048
     Dates: start: 20090212, end: 20090505
  2. GLIMEPIRIDE [Concomitant]
     Route: 065
     Dates: start: 20030814, end: 20090505
  3. ASPIRIN [Concomitant]
     Route: 065
  4. METFORMIN [Concomitant]
     Route: 065
     Dates: start: 20070730, end: 20090505
  5. RAMIPRIL [Concomitant]
     Route: 065
     Dates: start: 20090212, end: 20090505

REACTIONS (1)
  - MYOCARDIAL INFARCTION [None]
